FAERS Safety Report 14544933 (Version 1)
Quarter: 2018Q1

REPORT INFORMATION
  Report Type: Spontaneous
  Country: US (occurrence: US)
  Receive Date: 20180217
  Receipt Date: 20180217
  Transmission Date: 20180509
  Serious: Yes (Disabling, Other)
  Sender: FDA-Public Use
  Company Number: US-JNJFOC-20180208062

PATIENT
  Sex: Male

DRUGS (1)
  1. INVOKANA [Suspect]
     Active Substance: CANAGLIFLOZIN
     Indication: DIABETES MELLITUS
     Route: 048
     Dates: start: 2015

REACTIONS (4)
  - Foot amputation [Unknown]
  - Leg amputation [Unknown]
  - Toe amputation [Unknown]
  - Toe amputation [Unknown]

NARRATIVE: CASE EVENT DATE: 201609
